FAERS Safety Report 22934315 (Version 2)
Quarter: 2023Q4

REPORT INFORMATION
  Report Type: Report from Study
  Country: TH (occurrence: TH)
  Receive Date: 20230912
  Receipt Date: 20231006
  Transmission Date: 20240110
  Serious: Yes (Other)
  Sender: FDA-Public Use
  Company Number: TH-002147023-NVSC2023TH019580

PATIENT
  Age: 77 Year
  Sex: Female

DRUGS (10)
  1. KISQALI [Suspect]
     Active Substance: RIBOCICLIB
     Indication: Breast cancer metastatic
     Dosage: 600 MG, QD
     Route: 048
     Dates: start: 20221118
  2. KISQALI [Suspect]
     Active Substance: RIBOCICLIB
     Dosage: 600 MG, QD
     Route: 048
     Dates: start: 202212
  3. KISQALI [Suspect]
     Active Substance: RIBOCICLIB
     Dosage: 400 MG, QD (FEB 2023)
     Route: 048
  4. KISQALI [Suspect]
     Active Substance: RIBOCICLIB
     Dosage: 400 MG, QD
     Route: 048
     Dates: start: 20230405, end: 20230412
  5. LETROZOLE [Suspect]
     Active Substance: LETROZOLE
     Indication: Breast cancer metastatic
     Dosage: UNK
     Route: 065
     Dates: start: 20221118
  6. LETROZOLE [Suspect]
     Active Substance: LETROZOLE
     Dosage: 25 MG, QD
     Route: 048
  7. SIMVASTATIN [Concomitant]
     Active Substance: SIMVASTATIN
     Indication: Product used for unknown indication
     Dosage: 20 MG
     Route: 065
  8. SIMVASTATIN [Concomitant]
     Active Substance: SIMVASTATIN
     Dosage: 201
     Route: 065
  9. AMITRIPTYLINE HYDROCHLORIDE [Concomitant]
     Active Substance: AMITRIPTYLINE HYDROCHLORIDE
     Indication: Product used for unknown indication
     Dosage: 10 MG
     Route: 065
  10. AMITRIPTYLINE HYDROCHLORIDE [Concomitant]
     Active Substance: AMITRIPTYLINE HYDROCHLORIDE
     Dosage: 251 MG
     Route: 065

REACTIONS (5)
  - Neutrophil count decreased [Recovering/Resolving]
  - Hepatitis [Unknown]
  - Aspartate aminotransferase increased [Unknown]
  - Alanine aminotransferase increased [Unknown]
  - White blood cell count decreased [Recovering/Resolving]

NARRATIVE: CASE EVENT DATE: 20221215
